FAERS Safety Report 19772581 (Version 1)
Quarter: 2021Q3

REPORT INFORMATION
  Report Type: Spontaneous
  Country: US (occurrence: US)
  Receive Date: 20210901
  Receipt Date: 20210901
  Transmission Date: 20211014
  Serious: No
  Sender: FDA-Public Use
  Company Number: None

PATIENT
  Age: 22 Year
  Sex: Female
  Weight: 69.75 kg

DRUGS (1)
  1. REGEN?COV [Suspect]
     Active Substance: CASIRIVIMAB\IMDEVIMAB
     Indication: COVID-19
     Dosage: ?          OTHER FREQUENCY:ONE TIME DOSE;?
     Route: 058
     Dates: start: 20210829, end: 20210829

REACTIONS (2)
  - Injection site cellulitis [None]
  - Injection site reaction [None]

NARRATIVE: CASE EVENT DATE: 20210829
